FAERS Safety Report 4687638-1 (Version None)
Quarter: 2005Q2

REPORT INFORMATION
  Report Type: 
  Country: None (occurrence: None)
  Receive Date: 20050609
  Receipt Date: 20050609
  Transmission Date: 20051028
  Serious: Yes (Life-Threatening, Hospitalization)
  Sender: FDA-Public Use
  Company Number: None

PATIENT
  Age: 48 Year
  Sex: Male
  Weight: 101.6057 kg

DRUGS (8)
  1. ZICONOTIDE INTRATHECAL INFUSION - PRIALT (ELAN PHARMACEUTICALS) [Suspect]
     Indication: BACK DISORDER
     Dosage: CONCENTRATION = 25.0 MCG/ML INFUSION 3.6MCG/DAY
     Dates: start: 20050404, end: 20050415
  2. ZICONOTIDE INTRATHECAL INFUSION - PRIALT (ELAN PHARMACEUTICALS) [Suspect]
     Indication: PAIN
     Dosage: CONCENTRATION = 25.0 MCG/ML INFUSION 3.6MCG/DAY
     Dates: start: 20050404, end: 20050415
  3. ZICONOTIDE INTRATHECAL INFUSION - PRIALT (ELAN PHARMACEUTICALS) [Suspect]
     Indication: SURGERY
     Dosage: CONCENTRATION = 25.0 MCG/ML INFUSION 3.6MCG/DAY
     Dates: start: 20050404, end: 20050415
  4. ALBUTEROL [Concomitant]
  5. CONCERTA [Concomitant]
  6. SENOKOT [Concomitant]
  7. METHADONE HCL [Concomitant]
  8. OXYDOSE [Concomitant]

REACTIONS (7)
  - BALANCE DISORDER [None]
  - HEADACHE [None]
  - MEMORY IMPAIRMENT [None]
  - MUSCULOSKELETAL STIFFNESS [None]
  - PSYCHOTIC DISORDER [None]
  - SUICIDE ATTEMPT [None]
  - VISUAL DISTURBANCE [None]
